FAERS Safety Report 24453377 (Version 2)
Quarter: 2024Q4

REPORT INFORMATION
  Report Type: Report from Study
  Country: CA (occurrence: CA)
  Receive Date: 20241017
  Receipt Date: 20241018
  Transmission Date: 20250115
  Serious: No
  Sender: ROCHE
  Company Number: CA-ROCHE-3352029

PATIENT
  Age: 67 Year
  Sex: Female

DRUGS (16)
  1. RITUXAN [Suspect]
     Active Substance: RITUXIMAB
     Indication: Rheumatoid arthritis
     Dosage: DAY 1; 15
     Route: 042
     Dates: start: 20191121
  2. RITUXAN [Suspect]
     Active Substance: RITUXIMAB
     Route: 042
  3. RITUXAN [Suspect]
     Active Substance: RITUXIMAB
     Route: 042
  4. BENADRYL [Suspect]
     Active Substance: DIPHENHYDRAMINE HYDROCHLORIDE
     Indication: Premedication
     Dosage: FIRST PIR RECEIVED
     Route: 048
     Dates: start: 20211013
  5. ASPIRIN [Concomitant]
     Active Substance: ASPIRIN
  6. ACLASTA [Concomitant]
     Active Substance: ZOLEDRONIC ACID
  7. BIOTIN [Concomitant]
     Active Substance: BIOTIN
  8. COLLAGEN [Concomitant]
     Active Substance: COLLAGEN
  9. IRON [Concomitant]
     Active Substance: IRON
  10. MESTINON [Concomitant]
     Active Substance: PYRIDOSTIGMINE BROMIDE
  11. METHOTREXATE [Concomitant]
     Active Substance: METHOTREXATE
     Indication: Joint swelling
  12. OMEGA 3 [Concomitant]
     Active Substance: CAPSAICIN
  13. PREDNISONE [Concomitant]
     Active Substance: PREDNISONE
  14. SOLU-MEDROL [Concomitant]
     Active Substance: METHYLPREDNISOLONE SODIUM SUCCINATE
     Indication: Premedication
     Dosage: FIRST PIR RECEIVED
     Route: 042
     Dates: start: 20211013
  15. TYLENOL [Concomitant]
     Active Substance: ACETAMINOPHEN
     Indication: Premedication
     Dosage: FIRST PIR RECEIVED
     Route: 048
     Dates: start: 20211013
  16. VITAMIN C [Concomitant]
     Active Substance: ASCORBIC ACID

REACTIONS (6)
  - Blood pressure systolic abnormal [Unknown]
  - Blood pressure diastolic decreased [Unknown]
  - Blood pressure diastolic abnormal [Unknown]
  - Blood pressure diastolic increased [Unknown]
  - Blood pressure systolic increased [Unknown]
  - Oxygen saturation decreased [Unknown]

NARRATIVE: CASE EVENT DATE: 20230516
